FAERS Safety Report 7150763-X (Version None)
Quarter: 2010Q4

REPORT INFORMATION
  Report Type: 
  Country: None (occurrence: None)
  Receive Date: 20101210
  Receipt Date: 20101206
  Transmission Date: 20110411
  Serious: Yes (Death, Hospitalization)
  Sender: FDA-Public Use
  Company Number: IT-ROCHE-545813

PATIENT
  Sex: Female

DRUGS (5)
  1. XELODA [Suspect]
     Route: 048
     Dates: start: 20080111, end: 20080116
  2. XELODA [Suspect]
     Dosage: CUMULATIVE DOSE: 12000 MG/MQ
     Route: 048
  3. XELODA [Suspect]
     Dosage: THE PATIENT RECEIVED ADDITIONAL CAPECITABINE THERAPY
     Route: 048
  4. DECAPEPTYL [Concomitant]
     Dosage: FORM: VIAL
  5. AROMASIN [Concomitant]
     Route: 048

REACTIONS (3)
  - CARDIOGENIC SHOCK [None]
  - HEPATIC FAILURE [None]
  - PRESYNCOPE [None]
